FAERS Safety Report 8389560 (Version 3)
Quarter: 2015Q2

REPORT INFORMATION
  Report Type: Report from Study
  Country: US (occurrence: US)
  Receive Date: 20120203
  Receipt Date: 20150616
  Transmission Date: 20150821
  Serious: Yes (Death)
  Sender: FDA-Public Use
  Company Number: US-ROCHE-1036258

PATIENT
  Sex: Male
  Weight: 89.6 kg

DRUGS (13)
  1. TAXOL [Concomitant]
     Active Substance: PACLITAXEL
     Route: 042
  2. PROCRIT [Concomitant]
     Active Substance: ERYTHROPOIETIN
     Dosage: 40000 IVP
     Route: 065
  3. AVASTIN [Suspect]
     Active Substance: BEVACIZUMAB
     Indication: BRAIN NEOPLASM MALIGNANT
     Dosage: 15 MG/KG?THERAPY DATES: 05/SEP/2006, 20/SEP/2006, 25/OCT/2006, 08/NOV/2006, 22/NOV/2006, 06/DEC/2006
     Route: 042
     Dates: start: 20060814
  4. NEULASTA [Concomitant]
     Active Substance: PEGFILGRASTIM
     Route: 058
  5. ALOXI [Concomitant]
     Active Substance: PALONOSETRON HYDROCHLORIDE
     Route: 042
  6. SODIUM BICARBONATE. [Concomitant]
     Active Substance: SODIUM BICARBONATE
     Route: 042
  7. ETOPOSIDE. [Concomitant]
     Active Substance: ETOPOSIDE
     Dosage: 50-100 MG/M2
     Route: 048
  8. NITROGEN MUSTARD [Concomitant]
     Active Substance: MECHLORETHAMINE OXIDE HYDROCHLORIDE
     Route: 042
  9. DECADRON [Concomitant]
     Active Substance: DEXAMETHASONE
     Route: 042
  10. LEVAQUIN [Concomitant]
     Active Substance: LEVOFLOXACIN
     Route: 065
  11. CAMPTOSAR [Concomitant]
     Active Substance: IRINOTECAN HYDROCHLORIDE
  12. METHOTREXATE [Concomitant]
     Active Substance: METHOTREXATE
     Route: 042
  13. PROCRIT [Concomitant]
     Active Substance: ERYTHROPOIETIN
     Dosage: 60000 IVP
     Route: 065

REACTIONS (2)
  - Brain neoplasm [Fatal]
  - Off label use [Unknown]
